FAERS Safety Report 13024298 (Version 1)
Quarter: 2016Q4

REPORT INFORMATION
  Report Type: Report from Study
  Country: US (occurrence: US)
  Receive Date: 20161213
  Receipt Date: 20161213
  Transmission Date: 20170207
  Serious: Yes (Other)
  Sender: FDA-Public Use
  Company Number: US-GILEAD-2016-0245546

PATIENT
  Age: 59 Year
  Sex: Male

DRUGS (1)
  1. LEDIPASVIR/SOFOSBUVIR [Suspect]
     Active Substance: LEDIPASVIR\SOFOSBUVIR
     Indication: CHRONIC HEPATITIS C
     Dosage: 1 DF, QD
     Route: 048
     Dates: start: 20161025

REACTIONS (8)
  - Dizziness [Unknown]
  - Blood pressure abnormal [Unknown]
  - Heart rate increased [Unknown]
  - Pain [Unknown]
  - Dyspepsia [Unknown]
  - Drug dose omission [Unknown]
  - Blindness [Recovered/Resolved]
  - Headache [Unknown]

NARRATIVE: CASE EVENT DATE: 20161129
